FAERS Safety Report 17112442 (Version 1)
Quarter: 2019Q4

REPORT INFORMATION
  Report Type: Spontaneous
  Country: US (occurrence: US)
  Receive Date: 20191204
  Receipt Date: 20191204
  Transmission Date: 20200122
  Serious: No
  Sender: FDA-Public Use
  Company Number: US-PFIZER INC-2019496563

PATIENT
  Age: 88 Year
  Sex: Female
  Weight: 56.24 kg

DRUGS (1)
  1. FLECTOR [Suspect]
     Active Substance: DICLOFENAC EPOLAMINE
     Indication: ARTHRALGIA
     Dosage: 1 DF, 2X/DAY
     Dates: start: 2012

REACTIONS (2)
  - Arthralgia [Unknown]
  - Disease progression [Unknown]
